FAERS Safety Report 7798748-4 (Version None)
Quarter: 2011Q4

REPORT INFORMATION
  Report Type: 
  Country: None (occurrence: None)
  Receive Date: 20111006
  Receipt Date: 20110928
  Transmission Date: 20120403
  Serious: No
  Sender: FDA-Public Use
  Company Number: US-BIOGENIDEC-2011BI037332

PATIENT
  Sex: Female

DRUGS (2)
  1. AVONEX [Suspect]
     Indication: MULTIPLE SCLEROSIS
     Route: 030
     Dates: start: 20041027
  2. ANTIDEPRESSANTS (NOS) [Concomitant]
     Indication: DEPRESSION

REACTIONS (5)
  - FATIGUE [None]
  - INJECTION SITE HAEMATOMA [None]
  - STRESS [None]
  - TREMOR [None]
  - PAIN IN EXTREMITY [None]
